FAERS Safety Report 23167137 (Version 1)
Quarter: 2023Q4

REPORT INFORMATION
  Report Type: Report from Study
  Country: FR (occurrence: FR)
  Receive Date: 20231109
  Receipt Date: 20231109
  Transmission Date: 20240110
  Serious: Yes (Death)
  Sender: FDA-Public Use
  Company Number: FR-PFIZER INC-PV202300181021

PATIENT
  Age: 67 Year
  Sex: Female
  Weight: 49 kg

DRUGS (9)
  1. GEMTUZUMAB OZOGAMICIN [Suspect]
     Active Substance: GEMTUZUMAB OZOGAMICIN
     Dosage: AT  D1, D4 AND D7; ADMINISTRATION BEFORE SAE ON 04OCT2023
     Route: 042
     Dates: start: 20230928, end: 20231004
  2. CYTARABINE [Suspect]
     Active Substance: CYTARABINE
     Dosage: EVERY CYCLE, ADMINISTRATION BEFORE SAE ON 02OCT2023
     Route: 042
     Dates: start: 20230928, end: 20231002
  3. GILTERITINIB [Suspect]
     Active Substance: GILTERITINIB
     Dosage: 80 MG, DAILY
     Route: 048
     Dates: start: 20231007, end: 20231018
  4. ACETAMINOPHEN [Concomitant]
     Active Substance: ACETAMINOPHEN
     Dosage: 1 G
     Dates: start: 20231001
  5. MEROPENEM [Concomitant]
     Active Substance: MEROPENEM
     Dosage: 1 G
     Dates: start: 20231003
  6. CASPOFUNGIN [Concomitant]
     Active Substance: CASPOFUNGIN
     Dosage: 50 MG
     Dates: start: 20231004
  7. BICALAN [SODIUM BICARBONATE] [Concomitant]
     Dosage: UNK
     Dates: start: 20230927
  8. SCOPOLAMINE [Concomitant]
     Active Substance: SCOPOLAMINE
     Dosage: 1 MG EVERY 72 HOURS
     Dates: start: 20231018
  9. PANTOPRAZOLE [Concomitant]
     Active Substance: PANTOPRAZOLE
     Dosage: 40 MG
     Dates: start: 20231011

REACTIONS (1)
  - Cerebral haemorrhage [Fatal]

NARRATIVE: CASE EVENT DATE: 20231018
